FAERS Safety Report 5076601-7 (Version None)
Quarter: 2006Q3

REPORT INFORMATION
  Report Type: 
  Country: None (occurrence: None)
  Receive Date: 20060725
  Receipt Date: 20060308
  Transmission Date: 20061208
  Serious: No
  Sender: FDA-Public Use
  Company Number: 200611369BWH

PATIENT
  Age: 68 Year
  Sex: Male

DRUGS (6)
  1. NEXAVAR [Suspect]
     Indication: RENAL CELL CARCINOMA STAGE UNSPECIFIED
     Dosage: 400 MG, BID, ORAL
     Route: 048
     Dates: start: 20060217
  2. OXYCODONE HCL [Concomitant]
  3. ASCORBIC ACID [Concomitant]
  4. IRON [Concomitant]
  5. MULTI-VITAMIN [Concomitant]
  6. LOVENOX [Concomitant]

REACTIONS (3)
  - DIARRHOEA [None]
  - ERYTHEMA [None]
  - SKIN REACTION [None]
